FAERS Safety Report 6149778-X (Version None)
Quarter: 2009Q2

REPORT INFORMATION
  Report Type: 
  Country: None (occurrence: None)
  Receive Date: 20090407
  Receipt Date: 20090407
  Transmission Date: 20091009
  Serious: Yes (Hospitalization, Other)
  Sender: FDA-Public Use
  Company Number: None

PATIENT
  Age: 47 Year
  Sex: Male
  Weight: 92.9874 kg

DRUGS (1)
  1. GABAPENTIN [Suspect]
     Indication: NEURALGIA
     Dosage: 300 / 600 MG NIGHTLY PO
     Route: 048
     Dates: start: 20090301, end: 20090406

REACTIONS (4)
  - ABNORMAL DREAMS [None]
  - CRYING [None]
  - EMOTIONAL DISORDER [None]
  - NIGHTMARE [None]
